FAERS Safety Report 6261970-2 (Version None)
Quarter: 2009Q3

REPORT INFORMATION
  Report Type: 
  Country: None (occurrence: None)
  Receive Date: 20090709
  Receipt Date: 20090703
  Transmission Date: 20100115
  Serious: Yes (Hospitalization)
  Sender: FDA-Public Use
  Company Number: D0061719A

PATIENT
  Sex: Female
  Weight: 55 kg

DRUGS (6)
  1. TYVERB [Suspect]
     Dosage: 1250MG PER DAY
     Route: 048
     Dates: start: 20080901, end: 20090501
  2. AROMASIN [Concomitant]
     Indication: BREAST CANCER
     Dosage: 25MG UNKNOWN
     Route: 048
  3. IBUPROFEN [Concomitant]
     Indication: PAIN
     Dosage: 400MG THREE TIMES PER DAY
     Route: 048
  4. OXYGESIC [Concomitant]
     Indication: PAIN
     Dosage: 10MG THREE TIMES PER DAY
     Route: 048
  5. NULYTELY [Concomitant]
     Indication: CONSTIPATION PROPHYLAXIS
     Route: 048
  6. XELODA [Concomitant]
     Indication: BREAST CANCER
     Route: 048
     Dates: start: 20081101, end: 20090401

REACTIONS (9)
  - COUGH [None]
  - DYSPNOEA [None]
  - INTERSTITIAL LUNG DISEASE [None]
  - LUNG INFILTRATION [None]
  - PNEUMONIA PRIMARY ATYPICAL [None]
  - PNEUMONITIS [None]
  - PYREXIA [None]
  - RALES [None]
  - TACHYPNOEA [None]
